FAERS Safety Report 10398315 (Version 3)
Quarter: 2014Q4

REPORT INFORMATION
  Report Type: Spontaneous
  Country: DE (occurrence: DE)
  Receive Date: 20140821
  Receipt Date: 20141008
  Transmission Date: 20150528
  Serious: Yes (Death, Life-Threatening, Hospitalization)
  Sender: FDA-Public Use
  Company Number: DE-JNJFOC-20140812455

PATIENT
  Age: 36 Year
  Sex: Male
  Weight: 117 kg

DRUGS (9)
  1. PREDNISOLON [Concomitant]
     Active Substance: PREDNISOLONE
     Route: 048
     Dates: start: 20140503, end: 20140504
  2. NAPROXEN. [Concomitant]
     Active Substance: NAPROXEN
     Route: 048
     Dates: start: 20140506, end: 20140512
  3. STELARA [Suspect]
     Active Substance: USTEKINUMAB
     Indication: PSORIATIC ARTHROPATHY
     Route: 058
     Dates: start: 20140508
  4. ALLOPURINOL. [Concomitant]
     Active Substance: ALLOPURINOL
     Route: 048
     Dates: start: 201404
  5. PREDNISOLON [Concomitant]
     Active Substance: PREDNISOLONE
     Route: 048
     Dates: start: 20140501, end: 20140502
  6. PREDNISOLON [Concomitant]
     Active Substance: PREDNISOLONE
     Route: 048
     Dates: start: 20140506
  7. COLCHICINE. [Concomitant]
     Active Substance: COLCHICINE
     Dosage: 20 GTT
     Route: 048
     Dates: start: 20140502
  8. STELARA [Suspect]
     Active Substance: USTEKINUMAB
     Indication: PSORIASIS
     Route: 058
     Dates: start: 20140508
  9. PREDNISOLON [Concomitant]
     Active Substance: PREDNISOLONE
     Route: 048
     Dates: start: 20140429, end: 20140430

REACTIONS (4)
  - Pneumonia [Fatal]
  - Deep vein thrombosis [Fatal]
  - Myocarditis [Not Recovered/Not Resolved]
  - Pulmonary embolism [Fatal]

NARRATIVE: CASE EVENT DATE: 20140524
